FAERS Safety Report 4330323-6 (Version None)
Quarter: 2004Q1

REPORT INFORMATION
  Report Type: 
  Country: None (occurrence: None)
  Receive Date: 20040329
  Receipt Date: 20040324
  Transmission Date: 20041129
  Serious: Yes (Death)
  Sender: FDA-Public Use
  Company Number: 2004205108JP

PATIENT
  Sex: 0

DRUGS (2)
  1. HALCION [Suspect]
     Dosage: ORAL
     Route: 048
  2. LEXOTAN [Concomitant]

REACTIONS (1)
  - DRUG TOXICITY [None]
